FAERS Safety Report 4372527-2 (Version None)
Quarter: 2004Q2

REPORT INFORMATION
  Report Type: 
  Country: None (occurrence: None)
  Receive Date: 20040608
  Receipt Date: 20040601
  Transmission Date: 20050107
  Serious: Yes (Life-Threatening, Hospitalization)
  Sender: FDA-Public Use
  Company Number: PHBS2004GR07140

PATIENT
  Age: 77 Year
  Sex: Female

DRUGS (3)
  1. EXELON [Suspect]
     Route: 048
  2. EFFEXOR XR [Concomitant]
     Dosage: 75 MG/D
     Route: 065
     Dates: start: 20040101
  3. REMERON [Concomitant]
     Route: 065

REACTIONS (3)
  - HYPOXIA [None]
  - RESPIRATORY FAILURE [None]
  - SOMNOLENCE [None]
